FAERS Safety Report 9935961 (Version 1)
Quarter: 2014Q1

REPORT INFORMATION
  Report Type: Spontaneous
  Country: US (occurrence: US)
  Receive Date: 20140228
  Receipt Date: 20140228
  Transmission Date: 20141002
  Serious: No
  Sender: FDA-Public Use
  Company Number: US-AMGEN-USASP2013077197

PATIENT
  Age: 37 Year
  Sex: Female
  Weight: 63.49 kg

DRUGS (9)
  1. ENBREL [Suspect]
     Indication: ARTHROPATHY
     Dosage: 50 MG, QWK
     Route: 058
  2. CALCIUM [Concomitant]
     Dosage: UNK
  3. HYDROCODONE/APAP [Concomitant]
     Dosage: 5-500 MG, UNK
  4. IMITREX                            /01044801/ [Concomitant]
     Dosage: 100 MG, UNK
  5. PREDNISONE [Concomitant]
     Dosage: 10 MG, UNK
  6. FLEXERIL                           /00428402/ [Concomitant]
     Dosage: 10 MG, UNK
  7. CITALOPRAM [Concomitant]
     Dosage: 10 MG, UNK
  8. TRAZODONE [Concomitant]
     Dosage: 100 MG, UNK
  9. NAPROXEN [Concomitant]
     Dosage: 250 MG, UNK

REACTIONS (2)
  - Weight increased [Unknown]
  - Injection site irritation [Unknown]
